FAERS Safety Report 5479125-8 (Version None)
Quarter: 2007Q4

REPORT INFORMATION
  Report Type: 
  Country: None (occurrence: None)
  Receive Date: 20071006
  Receipt Date: 20070925
  Transmission Date: 20080405
  Serious: Yes (Hospitalization)
  Sender: FDA-Public Use
  Company Number: FR-PFIZER INC-2007081727

PATIENT
  Age: 69 Year
  Sex: Female

DRUGS (3)
  1. ARTHROTEC [Suspect]
     Indication: NECK PAIN
     Dosage: FREQ:BID
     Route: 048
     Dates: start: 20070317, end: 20070326
  2. CLOPAMIDE [Concomitant]
     Route: 048
  3. PINDOLOL [Concomitant]
     Route: 048

REACTIONS (3)
  - CONDITION AGGRAVATED [None]
  - METRORRHAGIA [None]
  - UTERINE LEIOMYOMA [None]
